FAERS Safety Report 5308389-6 (Version None)
Quarter: 2007Q2

REPORT INFORMATION
  Report Type: 
  Country: None (occurrence: None)
  Receive Date: 20070426
  Receipt Date: 20070417
  Transmission Date: 20071010
  Serious: Yes (Death, Other)
  Sender: FDA-Public Use
  Company Number: US-AVENTIS-200712652US

PATIENT
  Sex: Male
  Weight: 93.63 kg

DRUGS (9)
  1. TAXOTERE [Suspect]
     Indication: BREAST CANCER
     Dates: start: 20070206, end: 20070206
  2. DOXORUBICIN HCL [Suspect]
     Indication: BREAST CANCER
     Dosage: DOSE: UNK
  3. CYCLOPHOSPHAMIDE [Suspect]
     Indication: BREAST CANCER
     Dosage: DOSE: UNK
  4. EMEND [Concomitant]
     Indication: NAUSEA
     Dosage: DOSE: UNK
  5. COMPAZINE [Concomitant]
     Indication: NAUSEA
     Dosage: DOSE: UNK
  6. KYTRIL                             /01178101/ [Concomitant]
     Indication: NAUSEA
     Dosage: DOSE: UNK
  7. CARDIZEM [Concomitant]
     Dosage: DOSE: UNK
  8. LIPITOR [Concomitant]
     Dosage: DOSE: UNK
  9. SINGULAIR [Concomitant]
     Dosage: DOSE: UNK

REACTIONS (12)
  - ABDOMINAL PAIN [None]
  - CAECITIS [None]
  - DIARRHOEA [None]
  - DIZZINESS [None]
  - HYPOTENSION [None]
  - LOSS OF CONSCIOUSNESS [None]
  - MALAISE [None]
  - NEUTROPENIA [None]
  - OXYGEN SATURATION DECREASED [None]
  - URINARY RETENTION [None]
  - VOMITING [None]
  - WHITE BLOOD CELL COUNT DECREASED [None]
